FAERS Safety Report 24711507 (Version 2)
Quarter: 2025Q1

REPORT INFORMATION
  Report Type: Spontaneous
  Country: US (occurrence: US)
  Receive Date: 20241209
  Receipt Date: 20250212
  Transmission Date: 20250409
  Serious: Yes (Other)
  Sender: PROCTER AND GAMBLE
  Company Number: US-PROCTER_AND_GAMBLE-GS24105354

PATIENT
  Age: 70 Year
  Sex: Female
  Weight: 74.83 kg

DRUGS (4)
  1. CREST [Suspect]
     Active Substance: SODIUM FLUORIDE
     Indication: Tooth whitening
     Dosage: TWICE A DAY, FILL IN BRISTLES, 1 SMALL SQUEEZE
     Route: 002
     Dates: start: 202210, end: 202312
  2. CREST [Suspect]
     Active Substance: SODIUM FLUORIDE
     Indication: Tooth whitening
     Route: 002
  3. ATORVASTATIN [Concomitant]
     Active Substance: ATORVASTATIN
     Indication: Blood cholesterol increased
     Route: 065
  4. CELECOXIB [Concomitant]
     Active Substance: CELECOXIB
     Indication: Arthralgia
     Route: 065

REACTIONS (6)
  - Tooth fracture [Unknown]
  - Bone loss [Not Recovered/Not Resolved]
  - Gingival disorder [Unknown]
  - Gingival erosion [Unknown]
  - Dental caries [Recovering/Resolving]
  - Dental cyst [Unknown]

NARRATIVE: CASE EVENT DATE: 20230101
